FAERS Safety Report 15336490 (Version 2)
Quarter: 2018Q4

REPORT INFORMATION
  Report Type: Report from Study
  Country: US (occurrence: US)
  Receive Date: 20180830
  Receipt Date: 20181116
  Transmission Date: 20190204
  Serious: No
  Sender: FDA-Public Use
  Company Number: PHEH2018US035713

PATIENT
  Sex: Male

DRUGS (2)
  1. ENTRESTO [Suspect]
     Active Substance: SACUBITRIL\VALSARTAN
     Indication: CARDIAC FAILURE
     Dosage: 50 MG, (24/26) UNK
     Route: 048
  2. ENTRESTO [Suspect]
     Active Substance: SACUBITRIL\VALSARTAN
     Dosage: 100 MG, (49/51) UNK
     Route: 048

REACTIONS (4)
  - Musculoskeletal stiffness [Unknown]
  - Dizziness [Unknown]
  - Balance disorder [Unknown]
  - Asthenia [Unknown]
